FAERS Safety Report 7707373-2 (Version None)
Quarter: 2011Q3

REPORT INFORMATION
  Report Type: 
  Country: None (occurrence: None)
  Receive Date: 20110824
  Receipt Date: 20110817
  Transmission Date: 20111222
  Serious: Yes (Hospitalization)
  Sender: FDA-Public Use
  Company Number: US-B.I. PHARMACEUTICALS,INC./RIDGEFIELD-2011-DE-04633GD

PATIENT
  Age: 87 Year
  Sex: Male

DRUGS (4)
  1. DIPYRIDAMOLE [Suspect]
     Indication: CORONARY ARTERY DISEASE
  2. CLOPIDOGREL [Suspect]
     Indication: ACUTE CORONARY SYNDROME
     Dosage: 75 MG
  3. CLOPIDOGREL [Suspect]
     Indication: CORONARY ARTERY DISEASE
  4. DIPYRIDAMOLE [Suspect]
     Indication: ACUTE CORONARY SYNDROME
     Dosage: 50 MG

REACTIONS (4)
  - ANAEMIA [None]
  - GASTROINTESTINAL HAEMORRHAGE [None]
  - GASTRIC ULCER [None]
  - RENAL FAILURE [None]
